FAERS Safety Report 7576670-6 (Version None)
Quarter: 2011Q2

REPORT INFORMATION
  Report Type: 
  Country: None (occurrence: None)
  Receive Date: 20110525
  Receipt Date: 20110307
  Transmission Date: 20111010
  Serious: No
  Sender: FDA-Public Use
  Company Number: 325896

PATIENT
  Age: 61 Year
  Sex: Female

DRUGS (2)
  1. VICTOZA [Suspect]
     Indication: DIABETES MELLITUS
     Dosage: SUBCUTANEOUS
     Route: 058
     Dates: start: 20110227
  2. APIDRA (INSULIN GLULISINE) SOLUTION FOR INJECTION [Concomitant]

REACTIONS (2)
  - BACK PAIN [None]
  - NAUSEA [None]
